FAERS Safety Report 7893798-1 (Version None)
Quarter: 2011Q4

REPORT INFORMATION
  Report Type: 
  Country: None (occurrence: None)
  Receive Date: 20111104
  Receipt Date: 20111020
  Transmission Date: 20120403
  Serious: Yes (Death, Life-Threatening, Hospitalization)
  Sender: FDA-Public Use
  Company Number: JP-ROCHE-794338

PATIENT
  Sex: Male
  Weight: 83 kg

DRUGS (11)
  1. ACTEMRA [Suspect]
     Route: 041
  2. MUCOSTA [Concomitant]
     Route: 048
  3. NORVASC [Concomitant]
     Route: 048
  4. PREDNISOLONE [Suspect]
     Indication: RHEUMATOID ARTHRITIS
     Route: 048
  5. METHYCOBAL [Concomitant]
     Route: 048
  6. OLMESARTAN MEDOXOMIL [Concomitant]
     Route: 048
  7. ACTEMRA [Suspect]
     Indication: RHEUMATOID ARTHRITIS
     Route: 041
     Dates: start: 20090603, end: 20100510
  8. LORFENAMIN [Concomitant]
     Route: 048
  9. LASIX [Concomitant]
     Route: 048
  10. METHOTREXATE [Suspect]
     Indication: RHEUMATOID ARTHRITIS
     Dosage: DOSAGE IS UNCERTAIN
     Route: 048
  11. LANSOPRAZOLE [Concomitant]
     Route: 048

REACTIONS (8)
  - SUBARACHNOID HAEMORRHAGE [None]
  - STAPHYLOCOCCAL SEPSIS [None]
  - MULTI-ORGAN FAILURE [None]
  - DISSEMINATED INTRAVASCULAR COAGULATION [None]
  - PNEUMONIA LEGIONELLA [None]
  - SEPSIS [None]
  - SHOCK [None]
  - ACUTE RESPIRATORY DISTRESS SYNDROME [None]
